FAERS Safety Report 7854340-4 (Version None)
Quarter: 2011Q4

REPORT INFORMATION
  Report Type: 
  Country: None (occurrence: None)
  Receive Date: 20111026
  Receipt Date: 20111017
  Transmission Date: 20120403
  Serious: Yes (Other)
  Sender: FDA-Public Use
  Company Number: US-ASTRAZENECA-2011SE02205

PATIENT
  Age: 69 Year
  Sex: Female
  Weight: 59 kg

DRUGS (1)
  1. TOPROL-XL [Suspect]
     Indication: TACHYCARDIA
     Route: 048
     Dates: start: 20080101, end: 20101001

REACTIONS (20)
  - VERTIGO [None]
  - TACHYCARDIA [None]
  - FALL [None]
  - SYNCOPE [None]
  - ARTHRALGIA [None]
  - AMNESIA [None]
  - TACHYARRHYTHMIA [None]
  - HEAD INJURY [None]
  - DIZZINESS [None]
  - RASH [None]
  - HYPOAESTHESIA [None]
  - SPEECH DISORDER [None]
  - PERIPHERAL COLDNESS [None]
  - PAIN IN EXTREMITY [None]
  - PAIN [None]
  - SKIN DISCOLOURATION [None]
  - HERPES ZOSTER [None]
  - PAIN OF SKIN [None]
  - HEADACHE [None]
  - NECK PAIN [None]
